FAERS Safety Report 4665095-9 (Version None)
Quarter: 2005Q2

REPORT INFORMATION
  Report Type: 
  Country: None (occurrence: None)
  Receive Date: 20050517
  Receipt Date: 20050307
  Transmission Date: 20051028
  Serious: No
  Sender: FDA-Public Use
  Company Number: S05-USA-01209-01

PATIENT
  Age: 76 Year
  Sex: Male

DRUGS (9)
  1. NAMENDA [Suspect]
     Indication: DEMENTIA ALZHEIMER'S TYPE
     Dosage: 5 MG QD PO
     Route: 048
     Dates: start: 20050126, end: 20050201
  2. NAMENDA [Suspect]
     Indication: DEMENTIA ALZHEIMER'S TYPE
     Dosage: 5 MG BID PO
     Route: 048
     Dates: start: 20050202, end: 20050208
  3. NAMENDA [Suspect]
     Indication: DEMENTIA ALZHEIMER'S TYPE
     Dosage: 15 MG QD PO
     Route: 048
     Dates: start: 20050209, end: 20050215
  4. NAMENDA [Suspect]
     Indication: DEMENTIA ALZHEIMER'S TYPE
     Dosage: 10 MG BID PO
     Route: 048
     Dates: start: 20050216
  5. COUMADIN [Concomitant]
  6. PLAVIX [Concomitant]
  7. ZETIA [Concomitant]
  8. REMINYL [Concomitant]
  9. MULTIPLE MEDICATIONS (NOS) [Concomitant]

REACTIONS (1)
  - CONSTIPATION [None]
